FAERS Safety Report 5259360-4 (Version None)
Quarter: 2007Q1

REPORT INFORMATION
  Report Type: 
  Country: None (occurrence: None)
  Receive Date: 20070305
  Receipt Date: 20070216
  Transmission Date: 20070707
  Serious: Yes (Death)
  Sender: FDA-Public Use
  Company Number: 20070060

PATIENT
  Sex: Female

DRUGS (1)
  1. VENOFER [Suspect]
     Dosage: INTRAVENOUS DRIP
     Route: 041

REACTIONS (2)
  - ABDOMINAL PAIN [None]
  - INFUSION RELATED REACTION [None]
